FAERS Safety Report 6035399-6 (Version None)
Quarter: 2009Q1

REPORT INFORMATION
  Report Type: 
  Country: None (occurrence: None)
  Receive Date: 20090112
  Receipt Date: 20090112
  Transmission Date: 20090719
  Serious: No
  Sender: FDA-Public Use
  Company Number: None

PATIENT
  Age: 37 Year
  Sex: Male
  Weight: 89.8122 kg

DRUGS (1)
  1. ZICAM ZICAM [Suspect]
     Indication: NASOPHARYNGITIS
     Dosage: DAILY NASAL
     Route: 045
     Dates: start: 20080109, end: 20080110

REACTIONS (5)
  - ANOSMIA [None]
  - EYE IRRITATION [None]
  - NASAL DISCOMFORT [None]
  - OCULAR HYPERAEMIA [None]
  - PAROSMIA [None]
